FAERS Safety Report 5110301-X (Version None)
Quarter: 2006Q3

REPORT INFORMATION
  Report Type: 
  Country: None (occurrence: None)
  Receive Date: 20060921
  Receipt Date: 20060822
  Transmission Date: 20061208
  Serious: Yes (Hospitalization)
  Sender: FDA-Public Use
  Company Number: US-AVENTIS-200617642US

PATIENT
  Age: 80 Year
  Sex: Female

DRUGS (17)
  1. LANTUS [Suspect]
     Indication: DIABETES MELLITUS NON-INSULIN-DEPENDENT
     Dates: start: 20060628, end: 20060716
  2. OPTICLIK (INSULIN INJECTION PEN) [Suspect]
     Indication: DIABETES MELLITUS NON-INSULIN-DEPENDENT
     Dates: start: 20060628, end: 20060716
  3. GLUCOTROL XL [Concomitant]
  4. LOPRESSOR [Concomitant]
  5. LANOXIN [Concomitant]
  6. DIOVAN [Concomitant]
  7. HYDROCHLOROTHIAZIDE [Concomitant]
  8. ASPIRIN [Concomitant]
  9. IMDUR [Concomitant]
  10. POTASSIUM CHLORIDE [Concomitant]
  11. PLENDIL [Concomitant]
  12. TRICOR [Concomitant]
  13. ZETIA                                   /USA/ [Concomitant]
  14. ZOCOR [Concomitant]
  15. LEVEMIR [Concomitant]
     Dosage: DOSE: UNKNOWN
  16. BENADRYL [Concomitant]
     Indication: HYPERSENSITIVITY
  17. KEFLEX [Concomitant]

REACTIONS (4)
  - ABDOMINAL PAIN [None]
  - ATRIAL FIBRILLATION [None]
  - DRUG HYPERSENSITIVITY [None]
  - GASTRIC ULCER [None]
